FAERS Safety Report 6415465-3 (Version None)
Quarter: 2009Q4

REPORT INFORMATION
  Report Type: 
  Country: None (occurrence: None)
  Receive Date: 20091027
  Receipt Date: 20091023
  Transmission Date: 20100525
  Serious: Yes (Death)
  Sender: FDA-Public Use
  Company Number: PHHY2009CA16847

PATIENT
  Sex: Female

DRUGS (2)
  1. EXJADE [Suspect]
     Indication: IRON OVERLOAD
     Dosage: 1000 MG, QD
     Route: 048
     Dates: start: 20090201
  2. EXJADE [Suspect]
     Dosage: 1500 MG
     Route: 048
     Dates: start: 20090101

REACTIONS (3)
  - DEATH [None]
  - DIARRHOEA [None]
  - SERUM FERRITIN INCREASED [None]
